FAERS Safety Report 19746006 (Version 1)
Quarter: 2021Q3

REPORT INFORMATION
  Report Type: Spontaneous
  Country: US (occurrence: US)
  Receive Date: 20210824
  Receipt Date: 20210824
  Transmission Date: 20211014
  Serious: Yes (Life-Threatening)
  Sender: FDA-Public Use
  Company Number: None

PATIENT
  Age: 11 Month
  Sex: Male
  Weight: 13.15 kg

DRUGS (1)
  1. AMOXICILLIN. [Suspect]
     Active Substance: AMOXICILLIN

REACTIONS (3)
  - Product preparation issue [None]
  - Drug monitoring procedure not performed [None]
  - Product dispensing issue [None]

NARRATIVE: CASE EVENT DATE: 20200824
